FAERS Safety Report 4275069-8 (Version None)
Quarter: 2004Q1

REPORT INFORMATION
  Report Type: 
  Country: None (occurrence: None)
  Receive Date: 20040116
  Receipt Date: 20040105
  Transmission Date: 20041129
  Serious: Yes (Life-Threatening, Hospitalization)
  Sender: FDA-Public Use
  Company Number: FRP03000921

PATIENT
  Age: 57 Year
  Sex: Male
  Weight: 57 kg

DRUGS (7)
  1. DIDRONEL [Suspect]
     Indication: OSTEOPOROSIS
     Dosage: 400 MG, CYCLIC, 1/D,ORAL
     Route: 048
     Dates: start: 20000101
  2. CALCIDOSE (CALCIUM CARBONATE) [Suspect]
     Indication: OSTEOPOROSIS
     Dosage: ORAL
     Route: 048
     Dates: start: 20000101
  3. COLECALCIFEROL (COLECALCIFEROL) [Suspect]
     Indication: OSTEOPOROSIS
     Dosage: ORAL
     Route: 048
     Dates: start: 20000101
  4. SYMBICORT (FORMOTEROL, BUDESONIDE) [Suspect]
     Dosage: BUCCAL
     Route: 002
  5. VENTOLIN [Suspect]
     Dosage: BUCCAL
     Route: 002
  6. SOLUPRED (PRESNISOLONE SODIUM SULFOBENZOATE) [Suspect]
     Dosage: 20 MG, DAILY, ORAL
     Route: 048
  7. OGAST (LANSOPRAZOLE) [Suspect]
     Dosage: 30 MG, DAILY, ORAL
     Route: 048

REACTIONS (6)
  - ASTHMA [None]
  - BRADYCARDIA [None]
  - BUNDLE BRANCH BLOCK RIGHT [None]
  - CHRONIC OBSTRUCTIVE AIRWAYS DISEASE EXACERBATED [None]
  - LEUKOCYTOSIS [None]
  - RESPIRATORY FAILURE [None]
